FAERS Safety Report 16369214 (Version 1)
Quarter: 2019Q2

REPORT INFORMATION
  Report Type: Spontaneous
  Country: US (occurrence: US)
  Receive Date: 20190423
  Receipt Date: 20190423
  Transmission Date: 20190711
  Serious: Yes (Disabling, Other)
  Sender: FDA-Public Use
  Company Number: None

PATIENT
  Age: 86 Year
  Sex: Female
  Weight: 68.04 kg

DRUGS (10)
  1. CALCIUM [Concomitant]
     Active Substance: CALCIUM
  2. LATANOPROST SOL [Concomitant]
  3. VITAMIN D3 [Concomitant]
     Active Substance: CHOLECALCIFEROL
  4. VITA EYE [Concomitant]
  5. FLUTICASONE NASAL SPRAY [Suspect]
     Active Substance: FLUTICASONE
     Indication: OXYGEN THERAPY
     Dosage: ?          QUANTITY:2 DF DOSAGE FORM;?
     Route: 045
     Dates: end: 20190327
  6. TRAZODONE [Concomitant]
     Active Substance: TRAZODONE HYDROCHLORIDE
  7. PANTOPRAZOLE SOD EC [Concomitant]
  8. OXYGEN. [Concomitant]
     Active Substance: OXYGEN
  9. LINOSIL [Concomitant]
  10. EYE DROPS [Concomitant]
     Active Substance: UNSPECIFIED INGREDIENT

REACTIONS (3)
  - Macular degeneration [None]
  - Cataract [None]
  - Glaucoma [None]

NARRATIVE: CASE EVENT DATE: 20190303
